FAERS Safety Report 5860239-5 (Version None)
Quarter: 2008Q3

REPORT INFORMATION
  Report Type: 
  Country: None (occurrence: None)
  Receive Date: 20080818
  Receipt Date: 20080702
  Transmission Date: 20090109
  Serious: No
  Sender: FDA-Public Use
  Company Number: WAES 0807USA00604

PATIENT
  Age: 88 Year
  Sex: Female

DRUGS (4)
  1. JANUVIA [Suspect]
     Indication: TYPE 2 DIABETES MELLITUS
     Dosage: 100 MG/DAILY/PO
     Route: 048
     Dates: start: 20080629
  2. PLAVIX [Concomitant]
  3. ESTROPIPATE [Concomitant]
  4. RAMIPRIL [Concomitant]

REACTIONS (3)
  - DISTURBANCE IN ATTENTION [None]
  - NERVOUSNESS [None]
  - WRONG TECHNIQUE IN DRUG USAGE PROCESS [None]
